FAERS Safety Report 9924428 (Version 1)
Quarter: 2014Q1

REPORT INFORMATION
  Report Type: Spontaneous
  Country: FR (occurrence: None)
  Receive Date: 20140220
  Receipt Date: 20140220
  Transmission Date: 20141002
  Serious: No
  Sender: FDA-Public Use
  Company Number: SYM-2014-17259

PATIENT
  Age: 78 Year
  Sex: Female

DRUGS (2)
  1. MONO-TILDIEM [Suspect]
     Indication: HYPERTENSION
     Route: 048
     Dates: start: 2003
  2. TENORMINE [Suspect]
     Indication: ARRHYTHMIA
     Route: 048
     Dates: start: 201312

REACTIONS (3)
  - Ischaemic stroke [None]
  - Atrial fibrillation [None]
  - Drug interaction [None]
